FAERS Safety Report 5190208-2 (Version None)
Quarter: 2006Q4

REPORT INFORMATION
  Report Type: 
  Country: None (occurrence: None)
  Receive Date: 20061222
  Receipt Date: 20060817
  Transmission Date: 20070319
  Serious: No
  Sender: FDA-Public Use
  Company Number: US-AMGEN-US190375

PATIENT
  Sex: Male
  Weight: 71.5 kg

DRUGS (7)
  1. ARANESP [Suspect]
     Indication: DIALYSIS
     Route: 042
     Dates: start: 20060202
  2. ACCUPRIL [Concomitant]
  3. TOPROL-XL [Concomitant]
  4. PHOSLO [Concomitant]
  5. CENTRUM SILVER [Concomitant]
  6. INFED [Concomitant]
     Route: 042
     Dates: start: 20020711, end: 20030109
  7. FERRLECIT [Concomitant]
     Dates: start: 20030911

REACTIONS (1)
  - THERAPEUTIC RESPONSE DECREASED [None]
